FAERS Safety Report 7058803-3 (Version None)
Quarter: 2010Q4

REPORT INFORMATION
  Report Type: 
  Country: None (occurrence: None)
  Receive Date: 20101022
  Receipt Date: 20101013
  Transmission Date: 20110411
  Serious: Yes (Hospitalization)
  Sender: FDA-Public Use
  Company Number: CH-ABBOTT-10P-151-0678234-00

PATIENT
  Age: 68 Year
  Sex: Female

DRUGS (21)
  1. HUMIRA [Suspect]
     Indication: RHEUMATOID ARTHRITIS
     Dates: start: 20100401, end: 20100811
  2. METHOTREXATE SODIUM [Interacting]
     Indication: RHEUMATOID ARTHRITIS
     Route: 030
     Dates: start: 20091201, end: 20100901
  3. PREDNISOLON [Suspect]
     Indication: RHEUMATOID ARTHRITIS
     Dosage: 7.5 TO 10 MG PER DAY
     Route: 048
     Dates: start: 20100401
  4. TORASEMID [Suspect]
     Indication: ESSENTIAL HYPERTENSION
     Dosage: DOSE REDUCED
     Route: 048
     Dates: end: 20100911
  5. TORASEMID [Suspect]
     Dates: start: 20100911
  6. MEFENAMIC ACID [Interacting]
     Indication: RHEUMATOID ARTHRITIS
     Route: 048
     Dates: end: 20100911
  7. IBUPROFEN [Interacting]
     Indication: RHEUMATOID ARTHRITIS
     Route: 048
     Dates: end: 20100911
  8. AMOXICILLIN AND CLAVULANATE POTASSIUM [Suspect]
     Indication: RESPIRATORY TRACT INFECTION
     Route: 048
     Dates: start: 20100801, end: 20100801
  9. FLUCONAZOLE [Suspect]
     Indication: CANDIDIASIS
     Dates: start: 20100901, end: 20100901
  10. ASPIRIN [Concomitant]
     Indication: PRODUCT USED FOR UNKNOWN INDICATION
     Route: 048
     Dates: end: 20100911
  11. METOPROLOL SUCCINATE [Concomitant]
     Indication: PRODUCT USED FOR UNKNOWN INDICATION
     Route: 048
  12. BEROCCA C [Concomitant]
     Indication: PRODUCT USED FOR UNKNOWN INDICATION
     Route: 048
     Dates: end: 20100911
  13. COSAAR PLUS [Concomitant]
     Indication: PRODUCT USED FOR UNKNOWN INDICATION
     Dosage: 100/25 MG
     Route: 048
  14. LEVOTHYROXINE [Concomitant]
     Indication: HYPOTHYROIDISM
     Route: 048
  15. JANUMET [Concomitant]
     Indication: PRODUCT USED FOR UNKNOWN INDICATION
     Dosage: 50MG SITAGLIPTIN + 500MG METFORMIN
     Route: 048
     Dates: end: 20100911
  16. JANUVIA [Concomitant]
     Indication: PRODUCT USED FOR UNKNOWN INDICATION
     Dates: start: 20100911
  17. POTASSIUM CHLORIDE [Concomitant]
     Indication: PRODUCT USED FOR UNKNOWN INDICATION
     Route: 048
  18. MAGNESIOCARD [Concomitant]
     Indication: PRODUCT USED FOR UNKNOWN INDICATION
     Dosage: 3X 2.5 MG IN THE MORNING AND 3X 2.5 MG IN THE EVENING
     Route: 048
  19. PANTOPRAZOLE SODIUM [Concomitant]
     Indication: PRODUCT USED FOR UNKNOWN INDICATION
     Dosage: 40 MG IN THE EVENING
     Route: 048
  20. ATORVASTATIN [Concomitant]
     Indication: PRODUCT USED FOR UNKNOWN INDICATION
     Dosage: 20MG IN THE MORNING
     Route: 048
  21. FOLIC ACID [Concomitant]
     Indication: PRODUCT USED FOR UNKNOWN INDICATION
     Route: 048
     Dates: end: 20100901

REACTIONS (22)
  - ATRIAL FIBRILLATION [None]
  - BACK PAIN [None]
  - BACTERIAL INFECTION [None]
  - CHEILITIS [None]
  - DIZZINESS [None]
  - DRUG INTERACTION [None]
  - EPISTAXIS [None]
  - HAEMOGLOBIN DECREASED [None]
  - HYPOTENSION [None]
  - INFLAMMATORY MARKER INCREASED [None]
  - LIP ULCERATION [None]
  - MOUTH ULCERATION [None]
  - ODYNOPHAGIA [None]
  - ORAL CANDIDIASIS [None]
  - PALLOR [None]
  - PANCYTOPENIA [None]
  - PETECHIAE [None]
  - RASH MACULO-PAPULAR [None]
  - RENAL FAILURE ACUTE [None]
  - RENAL FAILURE CHRONIC [None]
  - STOMATITIS [None]
  - SUPRAVENTRICULAR TACHYCARDIA [None]
